FAERS Safety Report 23228276 (Version 1)
Quarter: 2023Q4

REPORT INFORMATION
  Report Type: Spontaneous
  Country: GB (occurrence: GB)
  Receive Date: 20231125
  Receipt Date: 20231125
  Transmission Date: 20240110
  Serious: Yes (Other)
  Sender: FDA-Public Use
  Company Number: None

PATIENT
  Age: 78 Year
  Sex: Male

DRUGS (17)
  1. APIXABAN [Suspect]
     Active Substance: APIXABAN
     Indication: Product used for unknown indication
  2. BROMFENAC SODIUM [Concomitant]
     Active Substance: BROMFENAC SODIUM
     Dosage: 900 MCG/ML
  3. PRED FORTE [Concomitant]
     Active Substance: PREDNISOLONE ACETATE
  4. POLYVINYL ALCOHOL [Concomitant]
     Active Substance: POLYVINYL ALCOHOL
     Dosage: THREE TIMES A DAY
  5. ACETAMINOPHEN [Concomitant]
     Active Substance: ACETAMINOPHEN
  6. TIMOLOL [Concomitant]
     Active Substance: TIMOLOL
     Dosage: 5MG/ML?EACH MORNING, LEFT EYE
  7. BISOPROLOL [Concomitant]
     Active Substance: BISOPROLOL\BISOPROLOL FUMARATE
  8. ATORVASTATIN [Concomitant]
     Active Substance: ATORVASTATIN
     Dosage: NIGHT
  9. DOXAZOSIN [Concomitant]
     Active Substance: DOXAZOSIN MESYLATE
  10. RAMIPRIL [Concomitant]
     Active Substance: RAMIPRIL
  11. LANSOPRAZOLE [Concomitant]
     Active Substance: LANSOPRAZOLE
     Dosage: EACH MORNING
  12. FUROSEMIDE [Concomitant]
     Active Substance: FUROSEMIDE
     Dosage: OM AND LUNCH
  13. FOLIC ACID [Concomitant]
     Active Substance: FOLIC ACID
  14. METFORMIN [Concomitant]
     Active Substance: METFORMIN HYDROCHLORIDE
  15. LATANOPROST [Concomitant]
     Active Substance: LATANOPROST
     Dosage: 50 MCG/ML?EACH MORNING, LEFT EYE
  16. FERROUS FUMARATE [Concomitant]
     Active Substance: FERROUS FUMARATE
  17. SITAGLIPTIN [Concomitant]
     Active Substance: SITAGLIPTIN

REACTIONS (2)
  - Pulmonary embolism [Not Recovered/Not Resolved]
  - Treatment failure [Unknown]
